FAERS Safety Report 24787781 (Version 3)
Quarter: 2025Q2

REPORT INFORMATION
  Report Type: Spontaneous
  Country: US (occurrence: US)
  Receive Date: 20241230
  Receipt Date: 20250404
  Transmission Date: 20250717
  Serious: No
  Sender: SANOFI AVENTIS
  Company Number: US-SA-2024SA382887

PATIENT
  Age: 30 Year
  Sex: Female
  Weight: 67.27 kg

DRUGS (9)
  1. DUPIXENT [Suspect]
     Active Substance: DUPILUMAB
     Indication: Dermatitis atopic
     Route: 058
     Dates: start: 20241205, end: 20241205
  2. DUPIXENT [Suspect]
     Active Substance: DUPILUMAB
     Indication: Eczema
     Dosage: 300 MG, QOW
     Route: 058
  3. IRON [Concomitant]
     Active Substance: IRON
  4. VITAMIN D3 [Concomitant]
     Active Substance: CHOLECALCIFEROL
  5. CELECOXIB [Concomitant]
     Active Substance: CELECOXIB
  6. CLOBETASOL [Concomitant]
     Active Substance: CLOBETASOL
  7. TACROLIMUS [Concomitant]
     Active Substance: TACROLIMUS
  8. KETOCONAZOLE [Concomitant]
     Active Substance: KETOCONAZOLE
  9. DESONIDE [Concomitant]
     Active Substance: DESONIDE

REACTIONS (2)
  - Eye irritation [Unknown]
  - Ocular hyperaemia [Unknown]

NARRATIVE: CASE EVENT DATE: 20241201
